FAERS Safety Report 10067362 (Version 2)
Quarter: 2014Q2

REPORT INFORMATION
  Report Type: Report from Study
  Country: US (occurrence: US)
  Receive Date: 20140409
  Receipt Date: 20140429
  Transmission Date: 20141212
  Serious: Yes (Death, Other)
  Sender: FDA-Public Use
  Company Number: GXBR2014US001039

PATIENT
  Age: 66 Year
  Sex: Female

DRUGS (1)
  1. ENOXAPARIN SODIUM [Suspect]
     Indication: THROMBOSIS
     Dosage: 150 MG, QD
     Route: 058
     Dates: start: 201309

REACTIONS (3)
  - Septic shock [Fatal]
  - Disseminated intravascular coagulation [Fatal]
  - Streptococcal infection [Not Recovered/Not Resolved]
